FAERS Safety Report 8417568-0 (Version None)
Quarter: 2012Q2

REPORT INFORMATION
  Report Type: 
  Country: None (occurrence: None)
  Receive Date: 20120606
  Receipt Date: 20120604
  Transmission Date: 20120825
  Serious: Yes (Other)
  Sender: FDA-Public Use
  Company Number: US-AMGEN-USASP2012019493

PATIENT
  Age: 59 Year
  Sex: Female
  Weight: 70.068 kg

DRUGS (14)
  1. NORCO [Concomitant]
     Dosage: UNK
  2. THYROID HORMONES [Concomitant]
     Dosage: UNK
  3. ANXIOLYTICS [Concomitant]
     Dosage: UNK
  4. FLUOXETINE [Concomitant]
  5. HYDROCORTISONE [Concomitant]
  6. PROLIA [Suspect]
     Indication: OSTEOPOROSIS POSTMENOPAUSAL
     Dosage: 60 MG, Q6MO
     Route: 058
     Dates: start: 20110605
  7. SIMVASTATIN [Concomitant]
  8. LORAZEPAM [Concomitant]
  9. VITAMIN D [Concomitant]
  10. PROZAC [Concomitant]
  11. PROLIA [Suspect]
     Dosage: 60 MG, Q6MO
     Route: 058
     Dates: start: 20111201
  12. ANTIDEPRESSANTS [Concomitant]
     Dosage: UNK
  13. IBUPROFEN [Concomitant]
     Dosage: UNK
  14. ADRENALINE                         /00003901/ [Concomitant]

REACTIONS (15)
  - OSTEOMYELITIS [None]
  - IMPAIRED HEALING [None]
  - TOOTH FRACTURE [None]
  - MOUTH ULCERATION [None]
  - OEDEMA MOUTH [None]
  - EXOSTOSIS [None]
  - ORAL PAIN [None]
  - SECRETION DISCHARGE [None]
  - PAIN IN JAW [None]
  - OSTEONECROSIS OF JAW [None]
  - GINGIVAL ERYTHEMA [None]
  - PRIMARY SEQUESTRUM [None]
  - BONE PAIN [None]
  - TOOTH INFECTION [None]
  - PAIN IN EXTREMITY [None]
